FAERS Safety Report 10545749 (Version 2)
Quarter: 2014Q4

REPORT INFORMATION
  Report Type: Spontaneous
  Country: JP (occurrence: JP)
  Receive Date: 20141027
  Receipt Date: 20141120
  Transmission Date: 20150529
  Serious: Yes (Other)
  Sender: FDA-Public Use
  Company Number: JP-US-EMD SERONO, INC.-7330097

PATIENT
  Sex: Male

DRUGS (1)
  1. SAIZEN [Suspect]
     Active Substance: SOMATROPIN
     Indication: SKELETAL DYSPLASIA
     Route: 065

REACTIONS (1)
  - Joint dislocation [Unknown]
